FAERS Safety Report 7025678-8 (Version None)
Quarter: 2010Q4

REPORT INFORMATION
  Report Type: 
  Country: None (occurrence: None)
  Receive Date: 20101004
  Receipt Date: 20100922
  Transmission Date: 20110411
  Serious: Yes (Other)
  Sender: FDA-Public Use
  Company Number: US-BIOGENIDEC-2010BI008194

PATIENT
  Age: 33 Year
  Sex: Female

DRUGS (3)
  1. TYSABRI [Suspect]
     Indication: MULTIPLE SCLEROSIS
     Route: 042
     Dates: start: 20061011, end: 20100212
  2. PRENATAL VITAMINS [Concomitant]
  3. CYTOTEC [Concomitant]
     Indication: ABORTION MISSED

REACTIONS (2)
  - ABORTION SPONTANEOUS [None]
  - PREGNANCY [None]
